FAERS Safety Report 21959485 (Version 2)
Quarter: 2023Q1

REPORT INFORMATION
  Report Type: Report from Study
  Country: PA (occurrence: PA)
  Receive Date: 20230206
  Receipt Date: 20230330
  Transmission Date: 20230417
  Serious: Yes (Other)
  Sender: FDA-Public Use
  Company Number: PA-002147023-NVSC2023PA008413

PATIENT
  Sex: Female
  Weight: 76.19 kg

DRUGS (2)
  1. EXFORGE HCT [Suspect]
     Active Substance: AMLODIPINE BESYLATE\HYDROCHLOROTHIAZIDE\VALSARTAN
     Indication: Hypertension
     Dosage: 182.5 MG, QD (10/160/12.5 MG: 5 MG OF AMLODIPINE (AS AMLODIPINE BESYLATE), 160 MG OF VALSARTAN AND 1
     Route: 048
     Dates: start: 2017
  2. EXFORGE HCT [Suspect]
     Active Substance: AMLODIPINE BESYLATE\HYDROCHLOROTHIAZIDE\VALSARTAN
     Dosage: 10/320/25MG, QD (10/320/25 MG: 10 MG OF AMLODIPINE (AS AMLODIPINE BESYLATE) AND 320 MG OF VALSARTAN
     Route: 048
     Dates: start: 202208

REACTIONS (3)
  - Rheumatoid arthritis [Unknown]
  - Blood cholesterol increased [Unknown]
  - Drug ineffective [Unknown]
